FAERS Safety Report 14770163 (Version 1)
Quarter: 2018Q2

REPORT INFORMATION
  Report Type: Report from Study
  Country: DE (occurrence: DE)
  Receive Date: 20180417
  Receipt Date: 20180417
  Transmission Date: 20180711
  Serious: Yes (Hospitalization, Other)
  Sender: FDA-Public Use
  Company Number: US-ASTRAZENECA-2016SE59527

PATIENT
  Age: 1 Year
  Sex: Male
  Weight: 9.3 kg

DRUGS (16)
  1. INFANRIX HEXA [Concomitant]
     Active Substance: DIPHTHERIA AND TETANUS TOXOIDS AND ACELLULAR PERTUSSIS ADSORBED, INACTIVATED POLIOVIRUS AND HAEMOPHILUS B CONJUGATE AND HEPATITIS B VIRUS VACCINE
     Indication: PRODUCT USED FOR UNKNOWN INDICATION
  2. ROTATEQ [Concomitant]
     Active Substance: HUMAN ROTAVIRUS A TYPE G1P7(5) STRAIN WI79 LIVE ANTIGEN\HUMAN ROTAVIRUS A TYPE G2P7(5) STRAIN SC2 LIVE ANTIGEN\HUMAN ROTAVIRUS A TYPE G3P7(5) STRAIN WI78 LIVE ANTIGEN\HUMAN ROTAVIRUS A TYPE G4P7(5) STRAIN BRB LIVE ANTIGEN\HUMAN ROTAVIRUS A TYPE G6P1A(8) STRAIN WI79 LIVE ANTIGEN
     Indication: PRODUCT USED FOR UNKNOWN INDICATION
  3. SYNAGIS [Suspect]
     Active Substance: PALIVIZUMAB
     Indication: ANTIVIRAL PROPHYLAXIS
     Route: 030
     Dates: start: 20151217, end: 20151217
  4. SYNAGIS [Suspect]
     Active Substance: PALIVIZUMAB
     Indication: INTERRUPTION OF AORTIC ARCH
     Route: 030
     Dates: start: 20151119, end: 20151119
  5. ACETYLSALICYLIC ACID [Concomitant]
     Active Substance: ASPIRIN
     Indication: PRODUCT USED FOR UNKNOWN INDICATION
  6. PREVENAR [Concomitant]
     Active Substance: PNEUMOCOCCAL 7-VALENT CONJUGATE VACCINE (DIPHTHERIA CRM197 PROTEIN)
     Indication: PRODUCT USED FOR UNKNOWN INDICATION
  7. SYNAGIS [Suspect]
     Active Substance: PALIVIZUMAB
     Indication: ANTIVIRAL PROPHYLAXIS
     Route: 030
     Dates: start: 20151119, end: 20151119
  8. SYNAGIS [Suspect]
     Active Substance: PALIVIZUMAB
     Indication: ANTIVIRAL PROPHYLAXIS
     Route: 030
     Dates: start: 20150921, end: 20150921
  9. D-FLUORETTEN [Concomitant]
     Indication: PRODUCT USED FOR UNKNOWN INDICATION
  10. VARIVAX [Concomitant]
     Active Substance: VARICELLA-ZOSTER VIRUS STRAIN OKA/MERCK LIVE ANTIGEN
     Indication: PRODUCT USED FOR UNKNOWN INDICATION
  11. SYNAGIS [Suspect]
     Active Substance: PALIVIZUMAB
     Indication: INTERRUPTION OF AORTIC ARCH
     Route: 030
     Dates: start: 20151217, end: 20151217
  12. SYNAGIS [Suspect]
     Active Substance: PALIVIZUMAB
     Indication: INTERRUPTION OF AORTIC ARCH
     Route: 030
     Dates: start: 20160127, end: 20160127
  13. SYNAGIS [Suspect]
     Active Substance: PALIVIZUMAB
     Indication: INTERRUPTION OF AORTIC ARCH
     Route: 030
     Dates: start: 20151022, end: 20151022
  14. SYNAGIS [Suspect]
     Active Substance: PALIVIZUMAB
     Indication: ANTIVIRAL PROPHYLAXIS
     Route: 030
     Dates: start: 20151022, end: 20151022
  15. SYNAGIS [Suspect]
     Active Substance: PALIVIZUMAB
     Indication: INTERRUPTION OF AORTIC ARCH
     Route: 030
     Dates: start: 20150921, end: 20150921
  16. SYNAGIS [Suspect]
     Active Substance: PALIVIZUMAB
     Indication: ANTIVIRAL PROPHYLAXIS
     Route: 030
     Dates: start: 20160127, end: 20160127

REACTIONS (18)
  - Pneumonia [Recovered/Resolved]
  - Pyrexia [Recovered/Resolved]
  - Asthenia [Unknown]
  - Vomiting [Recovered/Resolved]
  - Use of accessory respiratory muscles [Unknown]
  - Immunisation reaction [Recovered/Resolved]
  - General physical health deterioration [Recovered/Resolved]
  - Decreased appetite [Unknown]
  - Rales [Unknown]
  - Metabolic acidosis [Recovered/Resolved]
  - Excessive cerumen production [Unknown]
  - Dyspnoea [Recovered/Resolved]
  - Cardiac murmur [Recovered/Resolved]
  - Tachycardia [Recovered/Resolved]
  - Umbilical hernia [Unknown]
  - Productive cough [Unknown]
  - Paralysis recurrent laryngeal nerve [Unknown]
  - Dehydration [Unknown]

NARRATIVE: CASE EVENT DATE: 201601
